FAERS Safety Report 6562161-8 (Version None)
Quarter: 2010Q1

REPORT INFORMATION
  Report Type: 
  Country: None (occurrence: None)
  Receive Date: 20100130
  Receipt Date: 20091226
  Transmission Date: 20100710
  Serious: No
  Sender: FDA-Public Use
  Company Number: US-ABBOTT-09P-163-0604508-00

PATIENT
  Sex: Female
  Weight: 57.658 kg

DRUGS (13)
  1. HUMIRA [Suspect]
     Indication: SPONDYLITIS
     Route: 058
     Dates: start: 20090701
  2. MS CONTIN [Concomitant]
     Indication: PAIN
  3. MORPHINE SULFATE [Concomitant]
     Indication: DRUG USE FOR UNKNOWN INDICATION
     Dosage: BID PRN 2 X WEEK
  4. GABAPENTIN [Concomitant]
     Indication: ESSENTIAL TREMOR
  5. KLONOPIN [Concomitant]
     Indication: DRUG USE FOR UNKNOWN INDICATION
  6. ZOLOFT [Concomitant]
     Indication: DRUG USE FOR UNKNOWN INDICATION
  7. CITALOPRAM [Concomitant]
     Indication: DRUG USE FOR UNKNOWN INDICATION
  8. FOSAMAX [Concomitant]
     Indication: DRUG USE FOR UNKNOWN INDICATION
  9. SINGULAIR [Concomitant]
     Indication: DRUG USE FOR UNKNOWN INDICATION
  10. CHLORCON [Concomitant]
     Indication: DRUG USE FOR UNKNOWN INDICATION
  11. VIT B12 [Concomitant]
     Indication: DRUG USE FOR UNKNOWN INDICATION
  12. ANASPIN INJECT ? [Concomitant]
     Indication: DRUG USE FOR UNKNOWN INDICATION
  13. PREDNISONE [Concomitant]
     Indication: DRUG USE FOR UNKNOWN INDICATION
     Dosage: 2
     Route: 048

REACTIONS (3)
  - H1N1 INFLUENZA [None]
  - POOR QUALITY DRUG ADMINISTERED [None]
  - SINUS OPERATION [None]
